FAERS Safety Report 6091428-5 (Version None)
Quarter: 2009Q1

REPORT INFORMATION
  Report Type: 
  Country: None (occurrence: None)
  Receive Date: 20090223
  Receipt Date: 20090210
  Transmission Date: 20090719
  Serious: Yes (Other)
  Sender: FDA-Public Use
  Company Number: 2009AP000553

PATIENT
  Age: 43 Year
  Sex: Female

DRUGS (11)
  1. LITHIUM CARBONATE [Suspect]
     Dosage: 300 MG; QD PO
     Route: 048
  2. RISPERIDONE [Suspect]
     Dosage: 1.5 MG; QD PO
     Route: 048
  3. CITALOPRAM HYDROBROMIDE [Suspect]
     Dosage: 60 MG; QD PO
     Route: 048
  4. VALPROATE SODIUM [Suspect]
     Dosage: 250 MG; BID PO
     Route: 048
  5. LORAZEPAM [Concomitant]
  6. LEVOTHYROXINE SODIUM [Concomitant]
  7. TROSPIUM (TROSPIUM) [Concomitant]
  8. FLURAZEPAM HCL [Concomitant]
  9. DOCUSATE SODIUM (DOCUSATE SODIUM) [Concomitant]
  10. PARACETAMOL (PARACETAMOL) [Concomitant]
  11. CLONAZEPAM [Concomitant]

REACTIONS (3)
  - FACE OEDEMA [None]
  - OEDEMA PERIPHERAL [None]
  - PERIORBITAL OEDEMA [None]
